FAERS Safety Report 5874936-9 (Version None)
Quarter: 2008Q3

REPORT INFORMATION
  Report Type: 
  Country: None (occurrence: None)
  Receive Date: 20080909
  Receipt Date: 20080901
  Transmission Date: 20090109
  Serious: Yes (Hospitalization, Other)
  Sender: FDA-Public Use
  Company Number: GB-TEVA-176979ISR

PATIENT
  Age: 39 Year
  Sex: Female
  Weight: 52 kg

DRUGS (9)
  1. LACTULOSE [Suspect]
  2. CLONAZEPAM [Suspect]
  3. FOLIC ACID [Suspect]
  4. ISOFLURANE [Suspect]
     Route: 055
  5. LITHIUM [Suspect]
     Indication: POOR QUALITY SLEEP
  6. LITHIUM [Suspect]
     Indication: BIPOLAR DISORDER
  7. LITHIUM [Suspect]
     Indication: AGITATION
  8. OLANZAPINE [Suspect]
  9. THIOPENTONE [Suspect]

REACTIONS (12)
  - AGITATION [None]
  - AKATHISIA [None]
  - ANTIPSYCHOTIC DRUG LEVEL INCREASED [None]
  - BLOOD CREATININE INCREASED [None]
  - CONFUSIONAL STATE [None]
  - DELAYED RECOVERY FROM ANAESTHESIA [None]
  - DISORIENTATION [None]
  - GLASGOW COMA SCALE ABNORMAL [None]
  - HYDRONEPHROSIS [None]
  - RENAL IMPAIRMENT [None]
  - THERAPEUTIC AGENT TOXICITY [None]
  - URINOMA [None]
